FAERS Safety Report 15765984 (Version 1)
Quarter: 2018Q4

REPORT INFORMATION
  Report Type: Spontaneous
  Country: US (occurrence: US)
  Receive Date: 20181218
  Receipt Date: 20181218
  Transmission Date: 20190205
  Serious: No
  Sender: FDA-Public Use
  Company Number: None

PATIENT

DRUGS (2)
  1. AMANTADINE HCL AMANTADINE [Suspect]
     Active Substance: AMANTADINE HYDROCHLORIDE
  2. STRATTERA [Suspect]
     Active Substance: ATOMOXETINE HYDROCHLORIDE

REACTIONS (5)
  - Diarrhoea [None]
  - Mood altered [None]
  - Aggression [None]
  - Product dispensing error [None]
  - Wrong product administered [None]
